FAERS Safety Report 4743631-1 (Version None)
Quarter: 2005Q3

REPORT INFORMATION
  Report Type: 
  Country: None (occurrence: None)
  Receive Date: 20050812
  Receipt Date: 20050325
  Transmission Date: 20060218
  Serious: Yes (Death, Life-Threatening, Hospitalization, Other)
  Sender: FDA-Public Use
  Company Number: JP-BRISTOL-MYERS SQUIBB COMPANY-12915880

PATIENT
  Age: 70 Year
  Sex: Female

DRUGS (1)
  1. GATIFLO TABS 100 MG [Suspect]
     Indication: NASOPHARYNGITIS
     Route: 048
     Dates: start: 20050127

REACTIONS (4)
  - COMA HEPATIC [None]
  - HEPATIC FAILURE [None]
  - HEPATITIS FULMINANT [None]
  - LIVER TRANSPLANT [None]
